FAERS Safety Report 4405033-7 (Version None)
Quarter: 2004Q3

REPORT INFORMATION
  Report Type: 
  Country: None (occurrence: None)
  Receive Date: 20040715
  Receipt Date: 20040706
  Transmission Date: 20050211
  Serious: Yes (Hospitalization, Other)
  Sender: FDA-Public Use
  Company Number: 200419025BWH

PATIENT
  Age: 63 Year
  Sex: Male

DRUGS (3)
  1. CIPRO XR [Suspect]
     Indication: CYSTITIS
     Dosage: 500 MG, ONCE, ORAL
     Route: 048
     Dates: start: 20040515
  2. ANOTHER MEDICATION (FOR BLADDER INFECTION) (UNCODEABLE ^UNKNOWN MANUFA [Suspect]
     Dates: start: 20040515
  3. FLOMAX [Concomitant]

REACTIONS (4)
  - BLOOD SODIUM DECREASED [None]
  - DIARRHOEA [None]
  - DIZZINESS [None]
  - VOMITING [None]
